FAERS Safety Report 16833663 (Version 1)
Quarter: 2019Q3

REPORT INFORMATION
  Report Type: Spontaneous
  Country: GB (occurrence: GB)
  Receive Date: 20190920
  Receipt Date: 20190920
  Transmission Date: 20191005
  Serious: Yes (Hospitalization)
  Sender: FDA-Public Use
  Company Number: GB-MYLANLABS-2019M1087891

PATIENT
  Age: 57 Year
  Sex: Male
  Weight: 85 kg

DRUGS (6)
  1. ALENDRONIC ACID [Concomitant]
     Active Substance: ALENDRONIC ACID
     Dosage: UNK
  2. ALFACALCIDOL [Concomitant]
     Active Substance: ALFACALCIDOL
     Dosage: UNK
  3. AZATHIOPRINE. [Suspect]
     Active Substance: AZATHIOPRINE
     Indication: IMMUNE THROMBOCYTOPENIC PURPURA
     Dosage: 100 MILLIGRAM, 100 MG ESCALATING TO 200 MG
     Route: 048
     Dates: start: 20190308, end: 20190320
  4. PREDNISOLONE. [Concomitant]
     Active Substance: PREDNISOLONE
     Dosage: UNK
  5. LANSOPRAZOLE. [Concomitant]
     Active Substance: LANSOPRAZOLE
     Dosage: UNK
  6. AZATHIOPRINE. [Suspect]
     Active Substance: AZATHIOPRINE
     Dosage: 200 MILLIGRAM, 100 MG ESCALATING TO 200 MG. SYMPTOMS STARTED SHORTLY AFTER 200 MG.
     Route: 048
     Dates: start: 20190321, end: 20190403

REACTIONS (5)
  - Mouth ulceration [Unknown]
  - Chills [Recovered/Resolved]
  - C-reactive protein increased [Unknown]
  - Malaise [Unknown]
  - Pyrexia [Recovered/Resolved]

NARRATIVE: CASE EVENT DATE: 20190323
